FAERS Safety Report 9063681 (Version 4)
Quarter: 2013Q1

REPORT INFORMATION
  Report Type: Spontaneous
  Country: US (occurrence: US)
  Receive Date: 20130213
  Receipt Date: 20130301
  Transmission Date: 20140127
  Serious: Yes (Hospitalization, Other)
  Sender: FDA-Public Use
  Company Number: US-PFIZER INC-2013053874

PATIENT
  Age: 70 Year
  Sex: Female
  Weight: 92.97 kg

DRUGS (5)
  1. INDERAL LA [Suspect]
     Indication: BLOOD PRESSURE ABNORMAL
     Dosage: 80 MG, ONCE A DAY
     Route: 048
     Dates: start: 201301
  2. INDERAL LA [Suspect]
     Indication: HEART RATE IRREGULAR
  3. PROPANOLOL HCL [Suspect]
     Indication: BLOOD PRESSURE ABNORMAL
     Dosage: 80 MG, ONCE A DAY
     Route: 048
  4. PROPANOLOL HCL [Suspect]
     Indication: HEART RATE IRREGULAR
  5. PEPCID [Concomitant]
     Indication: PROPHYLAXIS AGAINST GASTROINTESTINAL ULCER
     Dosage: 20 MG, UNK

REACTIONS (14)
  - Blood pressure increased [Unknown]
  - Tinnitus [Unknown]
  - Flushing [Unknown]
  - Palpitations [Unknown]
  - Feeling jittery [Unknown]
  - Tremor [Unknown]
  - Heart rate irregular [Unknown]
  - Hypoacusis [Unknown]
  - Product physical issue [Unknown]
  - Weight increased [Unknown]
  - Poor quality sleep [Unknown]
  - Feeling abnormal [Unknown]
  - Hyperhidrosis [Unknown]
  - Headache [Unknown]
